FAERS Safety Report 7536314-6 (Version None)
Quarter: 2011Q2

REPORT INFORMATION
  Report Type: 
  Country: None (occurrence: None)
  Receive Date: 20110608
  Receipt Date: 20110608
  Transmission Date: 20111010
  Serious: No
  Sender: FDA-Public Use
  Company Number: None

PATIENT
  Age: 56 Year
  Sex: Male
  Weight: 78.4723 kg

DRUGS (1)
  1. MIDAZOLAM HCL [Suspect]
     Indication: ANAESTHESIA

REACTIONS (3)
  - AMNESIA [None]
  - PAIN [None]
  - MUSCULAR WEAKNESS [None]
